FAERS Safety Report 21362078 (Version 1)
Quarter: 2022Q3

REPORT INFORMATION
  Report Type: Spontaneous
  Country: DE (occurrence: DE)
  Receive Date: 20220922
  Receipt Date: 20220922
  Transmission Date: 20221026
  Serious: Yes (Hospitalization)
  Sender: FDA-Public Use
  Company Number: DE-NOVARTISPH-NVSC2022DE209126

PATIENT
  Age: 74 Year
  Sex: Female
  Weight: 90 kg

DRUGS (8)
  1. ASPIRIN [Suspect]
     Active Substance: ASPIRIN
     Indication: Product used for unknown indication
     Dosage: 100 MG, QD (100 MG, 1-0-0-0)
     Route: 065
  2. HERBALS [Concomitant]
     Active Substance: HERBALS
     Indication: Product used for unknown indication
     Dosage: UNK, (BEDARF)
     Route: 065
  3. MOVICOL [Concomitant]
     Active Substance: POLYETHYLENE GLYCOL 3350\POTASSIUM CHLORIDE\SODIUM BICARBONATE\SODIUM CHLORIDE
     Indication: Product used for unknown indication
     Dosage: UNK, (BEDARF)
     Route: 065
  4. CAMPHOR (SYNTHETIC)\MENTHOL [Concomitant]
     Active Substance: CAMPHOR (SYNTHETIC)\MENTHOL
     Indication: Product used for unknown indication
     Dosage: UNK, (BEDARF)
     Route: 065
  5. DIMETHICONE [Concomitant]
     Active Substance: DIMETHICONE
     Indication: Product used for unknown indication
     Dosage: UNK, (BEDARF)
     Route: 065
  6. MICTONORM UNO [Concomitant]
     Indication: Product used for unknown indication
     Dosage: 45 MG, QD (45 MG, 1-0-0-0)
     Route: 065
  7. CHOLECALCIFEROL [Concomitant]
     Active Substance: CHOLECALCIFEROL
     Indication: Product used for unknown indication
     Dosage: UNK, (4000 IE)
     Route: 065
  8. ATENOLOL [Concomitant]
     Active Substance: ATENOLOL
     Indication: Product used for unknown indication
     Dosage: 25 MG, QD (25 MG, 1-0-0-0)
     Route: 065

REACTIONS (9)
  - Cough [Unknown]
  - Haemolysis [Unknown]
  - Pulmonary oedema [Unknown]
  - Pulmonary haemorrhage [Unknown]
  - Pneumonia [Unknown]
  - Gallbladder rupture [Unknown]
  - Dyspnoea [Unknown]
  - Abdominal pain [Unknown]
  - Abdominal pain upper [Unknown]
